FAERS Safety Report 5215521-1 (Version None)
Quarter: 2007Q1

REPORT INFORMATION
  Report Type: 
  Country: None (occurrence: None)
  Receive Date: 20070123
  Receipt Date: 20070111
  Transmission Date: 20070707
  Serious: Yes (Hospitalization)
  Sender: FDA-Public Use
  Company Number: PHBS2006JP19806

PATIENT
  Age: 61 Year
  Sex: Male

DRUGS (4)
  1. TEGRETOL [Suspect]
     Dosage: 200 MG/DAY
     Route: 048
     Dates: start: 20050804, end: 20061221
  2. PARIET [Concomitant]
     Dosage: 10 MG/DAY
     Route: 048
  3. EPADEL [Concomitant]
     Dosage: 1800 MG/DAY
     Route: 048
  4. CYANOCOBALAMIN [Concomitant]
     Dosage: 1500 UG/DAY
     Route: 048

REACTIONS (4)
  - BLOOD CALCIUM INCREASED [None]
  - BLOOD CREATININE INCREASED [None]
  - HYPERCALCAEMIA OF MALIGNANCY [None]
  - RENAL FAILURE [None]
